FAERS Safety Report 16452065 (Version 2)
Quarter: 2019Q3

REPORT INFORMATION
  Report Type: Spontaneous
  Country: US (occurrence: US)
  Receive Date: 20190619
  Receipt Date: 20190705
  Transmission Date: 20191004
  Serious: Yes (Hospitalization, Other)
  Sender: FDA-Public Use
  Company Number: US-009507513-1906USA004497

PATIENT
  Sex: Female

DRUGS (1)
  1. PREGNYL [Suspect]
     Active Substance: CHORIOGONADOTROPIN ALFA
     Indication: OVULATION INDUCTION
     Dosage: UNK, CYCLICAL (SEVEN CYCLES)

REACTIONS (2)
  - Ovarian hyperstimulation syndrome [Recovered/Resolved]
  - Maternal exposure before pregnancy [Not Recovered/Not Resolved]
